FAERS Safety Report 5557507-3 (Version None)
Quarter: 2007Q4

REPORT INFORMATION
  Report Type: 
  Country: None (occurrence: None)
  Receive Date: 20071214
  Receipt Date: 20070925
  Transmission Date: 20080405
  Serious: No
  Sender: FDA-Public Use
  Company Number: US-AMGEN-KDL243588

PATIENT
  Sex: Female
  Weight: 134.4 kg

DRUGS (2)
  1. ENBREL [Suspect]
     Indication: SYSTEMIC LUPUS ERYTHEMATOSUS
     Route: 058
     Dates: start: 20070829
  2. PLAQUENIL [Concomitant]

REACTIONS (3)
  - ERYTHEMA [None]
  - JOINT SWELLING [None]
  - MOBILITY DECREASED [None]
